FAERS Safety Report 5959640-0 (Version None)
Quarter: 2008Q4

REPORT INFORMATION
  Report Type: 
  Country: None (occurrence: None)
  Receive Date: 20081120
  Receipt Date: 20081117
  Transmission Date: 20090506
  Serious: Yes (Other)
  Sender: FDA-Public Use
  Company Number: US-ELI_LILLY_AND_COMPANY-US200811004448

PATIENT
  Sex: Female

DRUGS (4)
  1. HUMALOG [Suspect]
     Indication: TYPE 1 DIABETES MELLITUS
  2. HUMULIN N [Suspect]
     Indication: TYPE 1 DIABETES MELLITUS
     Dosage: UNK, AS NEEDED
  3. HUMULIN R [Suspect]
     Indication: TYPE 1 DIABETES MELLITUS
  4. ILETIN [Suspect]
     Indication: TYPE 1 DIABETES MELLITUS

REACTIONS (6)
  - CATARACT OPERATION [None]
  - FATIGUE [None]
  - INJURY CORNEAL [None]
  - LYMPHOMA [None]
  - PANCREATIC INSUFFICIENCY [None]
  - VISION BLURRED [None]
